FAERS Safety Report 14688995 (Version 1)
Quarter: 2018Q1

REPORT INFORMATION
  Report Type: Spontaneous
  Country: US (occurrence: US)
  Receive Date: 20180327
  Receipt Date: 20180327
  Transmission Date: 20180509
  Serious: No
  Sender: FDA-Public Use
  Company Number: None

PATIENT
  Age: 13 Year
  Sex: Male
  Weight: 69.75 kg

DRUGS (1)
  1. AMOXICILLIN 500MG CAPSULES [Suspect]
     Active Substance: AMOXICILLIN
     Indication: VIRAL RHINITIS
     Dosage: ?          QUANTITY:40 CAPSULE(S);OTHER FREQUENCY:TWO TWICE DAILY;?
     Route: 048
     Dates: start: 20180322, end: 20180326

REACTIONS (3)
  - Dyspnoea [None]
  - Lung disorder [None]
  - Hot flush [None]

NARRATIVE: CASE EVENT DATE: 20180325
